FAERS Safety Report 11740240 (Version 2)
Quarter: 2015Q4

REPORT INFORMATION
  Report Type: Spontaneous
  Country: US (occurrence: US)
  Receive Date: 20151113
  Receipt Date: 20151208
  Transmission Date: 20160304
  Serious: Yes (Other)
  Sender: FDA-Public Use
  Company Number: US-ROXANE LABORATORIES, INC.-2015-RO-01900RO

PATIENT
  Sex: Female

DRUGS (4)
  1. METHADONE [Suspect]
     Active Substance: METHADONE HYDROCHLORIDE
     Indication: SMALL FIBRE NEUROPATHY
  2. VICODIN [Concomitant]
     Active Substance: ACETAMINOPHEN\HYDROCODONE BITARTRATE
     Indication: OSTEONECROSIS
     Route: 065
  3. METHADONE [Suspect]
     Active Substance: METHADONE HYDROCHLORIDE
     Indication: PAIN
     Dosage: 20 MG
     Route: 065
     Dates: end: 20151031
  4. VICODIN [Concomitant]
     Active Substance: ACETAMINOPHEN\HYDROCODONE BITARTRATE
     Indication: PAIN

REACTIONS (21)
  - Drug withdrawal syndrome [Unknown]
  - Confusional state [Unknown]
  - Formication [Unknown]
  - Muscle spasms [Unknown]
  - Cognitive disorder [Unknown]
  - Eye swelling [Unknown]
  - Oropharyngeal pain [Unknown]
  - Rhinophyma [Unknown]
  - Eye haemorrhage [Unknown]
  - Fatigue [Unknown]
  - Insomnia [Unknown]
  - Inhibitory drug interaction [Unknown]
  - Product quality issue [Unknown]
  - Weight increased [Unknown]
  - Decreased appetite [Unknown]
  - Vulvovaginal dryness [Recovered/Resolved]
  - Constipation [Unknown]
  - Dry throat [Recovered/Resolved]
  - Petechiae [Unknown]
  - Breast pain [Unknown]
  - Drug ineffective [Unknown]
